FAERS Safety Report 25645889 (Version 1)
Quarter: 2025Q3

REPORT INFORMATION
  Report Type: Spontaneous
  Country: US (occurrence: None)
  Receive Date: 20250804
  Receipt Date: 20250804
  Transmission Date: 20251020
  Serious: No
  Sender: FDA-CTU
  Company Number: None

PATIENT
  Age: 16 Year
  Sex: Female
  Weight: 58.5 kg

DRUGS (3)
  1. SILDENAFIL CITRATE [Suspect]
     Active Substance: SILDENAFIL CITRATE
     Dates: start: 20250727, end: 20250730
  2. CLONIDINE [Suspect]
     Active Substance: CLONIDINE
  3. clonidine .02mg 2 at bedtime iud [Concomitant]

REACTIONS (3)
  - Product dispensing error [None]
  - Wrong product administered [None]
  - Insomnia [None]

NARRATIVE: CASE EVENT DATE: 20250725
